FAERS Safety Report 8865185 (Version 1)
Quarter: 2012Q4

REPORT INFORMATION
  Report Type: 
  Country: US (occurrence: US)
  Receive Date: 20121024
  Receipt Date: 20121024
  Transmission Date: 20130627
  Serious: No
  Sender: FDA-Public Use
  Company Number: US-AMGEN-USASP2012001609

PATIENT
  Age: 70 Year
  Sex: Female

DRUGS (9)
  1. ENBREL [Suspect]
     Indication: PRODUCT USED FOR UNKNOWN INDICATION
     Dosage: 50 mg, qwk
     Route: 058
  2. PREMPRO [Concomitant]
     Dosage: UNK
  3. METHOTREXATE [Concomitant]
     Dosage: 2.5 mg, UNK
  4. BENADRYL                           /00000402/ [Concomitant]
     Dosage: 25 mg, UNK
  5. ECOTRIN [Concomitant]
     Dosage: 325 mg, UNK
  6. ACTONEL [Concomitant]
     Dosage: 30 mg, UNK
  7. FOLIC ACID [Concomitant]
     Dosage: 800 mug, UNK
  8. MULTIVITAMIN                       /00097801/ [Concomitant]
     Dosage: UNK
  9. VITAMIN D /00107901/ [Concomitant]
     Dosage: UNK

REACTIONS (1)
  - Abdominal pain upper [Unknown]
